FAERS Safety Report 14403339 (Version 1)
Quarter: 2018Q1

REPORT INFORMATION
  Report Type: Spontaneous
  Country: US (occurrence: US)
  Receive Date: 20180117
  Receipt Date: 20180117
  Transmission Date: 20180509
  Serious: Yes (Hospitalization)
  Sender: FDA-Public Use
  Company Number: US-PFIZER INC-9408320

PATIENT
  Age: 41 Year
  Sex: Male

DRUGS (10)
  1. FLUCONAZOLE. [Concomitant]
     Active Substance: FLUCONAZOLE
     Dosage: UNK
  2. RIFAMPIN. [Concomitant]
     Active Substance: RIFAMPIN
     Indication: PULMONARY TUBERCULOSIS
     Dosage: 600 MG, 2X/WEEK
     Route: 048
  3. BACTRIM [Concomitant]
     Active Substance: SULFAMETHOXAZOLE\TRIMETHOPRIM
     Dosage: UNK UNK, 1X/DAY [SULFAMETHOXAZOLE 800 MG]/[ TRIMETHOPRIM 160 MG]
     Route: 048
  4. RIFAMPIN. [Concomitant]
     Active Substance: RIFAMPIN
     Dosage: UNK
     Route: 048
     Dates: start: 199410
  5. ACYCLOVIR /00587301/ [Suspect]
     Active Substance: ACYCLOVIR
     Indication: HIV TEST POSITIVE
     Dosage: 400 MG, 2X/DAY (BID)
     Route: 048
     Dates: start: 19940805, end: 199408
  6. FLUCONAZOLE. [Concomitant]
     Active Substance: FLUCONAZOLE
     Indication: ORAL CANDIDIASIS
     Dosage: 100 MG, 1X/DAY(4 MONTHS)
     Route: 048
     Dates: start: 199404
  7. INH [Concomitant]
     Active Substance: ISONIAZID
     Dosage: 900 MG, 2X/WEEK
     Route: 048
  8. INH [Concomitant]
     Active Substance: ISONIAZID
     Dosage: UNK
  9. INH [Concomitant]
     Active Substance: ISONIAZID
     Indication: PULMONARY TUBERCULOSIS
     Dosage: UNK
     Route: 048
     Dates: start: 199310
  10. BACTRIM [Concomitant]
     Active Substance: SULFAMETHOXAZOLE\TRIMETHOPRIM
     Indication: PNEUMOCYSTIS JIROVECII PNEUMONIA
     Dosage: UNK
     Route: 048
     Dates: start: 199308

REACTIONS (2)
  - Stevens-Johnson syndrome [Recovered/Resolved]
  - Glomerulonephritis acute [Recovered/Resolved]

NARRATIVE: CASE EVENT DATE: 19940806
